FAERS Safety Report 13422426 (Version 1)
Quarter: 2017Q2

REPORT INFORMATION
  Report Type: Spontaneous
  Country: US (occurrence: US)
  Receive Date: 20170409
  Receipt Date: 20170409
  Transmission Date: 20170830
  Serious: Yes (Disabling, Other)
  Sender: FDA-Public Use
  Company Number: None

PATIENT
  Age: 74 Year
  Sex: Female
  Weight: 72.45 kg

DRUGS (2)
  1. RESTASIS [Suspect]
     Active Substance: CYCLOSPORINE
     Indication: DRY EYE
     Dosage: QUANTITY:120 VIAL;?
     Route: 047
     Dates: start: 20070103, end: 20170322
  2. SYSTANE BALANCE EYE DROPS AND NIGHT TIME GEL [Concomitant]

REACTIONS (9)
  - Headache [None]
  - Vision blurred [None]
  - Epistaxis [None]
  - Nervous system disorder [None]
  - Dizziness [None]
  - Withdrawal syndrome [None]
  - Mouth haemorrhage [None]
  - Nightmare [None]
  - Fatigue [None]

NARRATIVE: CASE EVENT DATE: 20170310
